FAERS Safety Report 13858791 (Version 1)
Quarter: 2017Q3

REPORT INFORMATION
  Report Type: Spontaneous
  Country: US (occurrence: US)
  Receive Date: 20170811
  Receipt Date: 20170811
  Transmission Date: 20171127
  Serious: No
  Sender: FDA-Public Use
  Company Number: US-PERRIGO-16US020391

PATIENT
  Sex: Male

DRUGS (1)
  1. LORATADINE. [Suspect]
     Active Substance: LORATADINE
     Indication: ARTHROPOD STING
     Dosage: UNKNOWN, UNKNOWN
     Route: 048
     Dates: start: 201609

REACTIONS (2)
  - Off label use [Unknown]
  - Spontaneous penile erection [Unknown]

NARRATIVE: CASE EVENT DATE: 201609
